FAERS Safety Report 25243250 (Version 1)
Quarter: 2025Q2

REPORT INFORMATION
  Report Type: Spontaneous
  Country: US (occurrence: US)
  Receive Date: 20250428
  Receipt Date: 20250428
  Transmission Date: 20250717
  Serious: No
  Sender: GLAXOSMITHKLINE
  Company Number: US-GSK-US2025041630

PATIENT
  Sex: Male

DRUGS (1)
  1. INCRUSE ELLIPTA [Suspect]
     Active Substance: UMECLIDINIUM BROMIDE
     Indication: Bronchitis
     Dosage: 1 PUFF(S), QD
     Dates: start: 20250407

REACTIONS (3)
  - Cough [Unknown]
  - Productive cough [Unknown]
  - Product use in unapproved indication [Unknown]
